FAERS Safety Report 7670149-9 (Version None)
Quarter: 2011Q3

REPORT INFORMATION
  Report Type: 
  Country: None (occurrence: None)
  Receive Date: 20110808
  Receipt Date: 20110802
  Transmission Date: 20111222
  Serious: Yes (Other)
  Sender: FDA-Public Use
  Company Number: US-ABBOTT-11P-163-0843857-00

PATIENT

DRUGS (1)
  1. SYNTHROID [Suspect]
     Indication: PRODUCT USED FOR UNKNOWN INDICATION

REACTIONS (5)
  - INFECTIOUS MONONUCLEOSIS [None]
  - SURGERY [None]
  - THYROID FUNCTION TEST ABNORMAL [None]
  - PARVOVIRUS INFECTION [None]
  - VIRAL INFECTION [None]
